FAERS Safety Report 13802671 (Version 1)
Quarter: 2017Q3

REPORT INFORMATION
  Report Type: Spontaneous
  Country: US (occurrence: US)
  Receive Date: 20170728
  Receipt Date: 20170728
  Transmission Date: 20171127
  Serious: No
  Sender: FDA-Public Use
  Company Number: US-PERRIGO-16US018568

PATIENT
  Age: 78 Year
  Sex: Male
  Weight: 71.66 kg

DRUGS (2)
  1. MINOXIDIL. [Suspect]
     Active Substance: MINOXIDIL
     Dosage: 1 ML, BID
     Route: 061
     Dates: start: 20160727
  2. MINOXIDIL. [Suspect]
     Active Substance: MINOXIDIL
     Indication: ALOPECIA
     Dosage: 1 ML, QD
     Route: 061
     Dates: start: 201604, end: 20160726

REACTIONS (5)
  - Inappropriate schedule of drug administration [Recovered/Resolved]
  - Sneezing [Unknown]
  - Headache [Recovered/Resolved]
  - Nasal congestion [Unknown]
  - Eye disorder [Unknown]

NARRATIVE: CASE EVENT DATE: 201604
